FAERS Safety Report 6073046-8 (Version None)
Quarter: 2009Q1

REPORT INFORMATION
  Report Type: 
  Country: None (occurrence: None)
  Receive Date: 20090211
  Receipt Date: 20090209
  Transmission Date: 20090719
  Serious: Yes (Death)
  Sender: FDA-Public Use
  Company Number: GB-JNJFOC-20081205294

PATIENT
  Sex: Male

DRUGS (1)
  1. FENTANYL-75 [Suspect]
     Indication: ANALGESIA
     Route: 062

REACTIONS (1)
  - ARRHYTHMIA [None]
